FAERS Safety Report 9329716 (Version 1)
Quarter: 2013Q2

REPORT INFORMATION
  Report Type: Spontaneous
  Country: US (occurrence: US)
  Receive Date: 20130604
  Receipt Date: 20130604
  Transmission Date: 20140414
  Serious: No
  Sender: FDA-Public Use
  Company Number: US-SANOFI-AVENTIS-2013SA001541

PATIENT
  Age: 58 Year
  Sex: Female

DRUGS (2)
  1. LANTUS SOLOSTAR [Suspect]
     Indication: DIABETES MELLITUS
     Dosage: DOSE:10 UNIT(S)
     Route: 051
     Dates: start: 20130103, end: 20130104
  2. SOLOSTAR [Suspect]
     Dates: start: 20130103, end: 20130104

REACTIONS (4)
  - Hypersensitivity [Recovered/Resolved]
  - Injection site reaction [Recovered/Resolved]
  - Rash generalised [Recovered/Resolved]
  - Chest discomfort [Recovered/Resolved]
